FAERS Safety Report 8261679-X (Version None)
Quarter: 2012Q2

REPORT INFORMATION
  Report Type: 
  Country: None (occurrence: None)
  Receive Date: 20120405
  Receipt Date: 20120405
  Transmission Date: 20120825
  Serious: Yes (Other)
  Sender: FDA-Public Use
  Company Number: None

PATIENT
  Age: 54 Year
  Sex: Male
  Weight: 108.86 kg

DRUGS (1)
  1. VIIBRYD [Suspect]
     Indication: DEPRESSION
     Dosage: 10 MG
     Route: 048
     Dates: start: 20111001, end: 20120331

REACTIONS (11)
  - VISION BLURRED [None]
  - MANIA [None]
  - INSOMNIA [None]
  - PANIC ATTACK [None]
  - MOTOR DYSFUNCTION [None]
  - CONFUSIONAL STATE [None]
  - LETHARGY [None]
  - ANXIETY [None]
  - DISTURBANCE IN ATTENTION [None]
  - DEPRESSION [None]
  - MEMORY IMPAIRMENT [None]
